FAERS Safety Report 9016172 (Version 3)
Quarter: 2016Q1

REPORT INFORMATION
  Report Type: Report from Study
  Country: DE (occurrence: DE)
  Receive Date: 20130116
  Receipt Date: 20160301
  Transmission Date: 20160526
  Serious: Yes (Other)
  Sender: FDA-Public Use
  Company Number: DE-TEVA-379363USA

PATIENT
  Age: 51 Year
  Sex: Male

DRUGS (6)
  1. BENDAMUSTINE [Suspect]
     Active Substance: BENDAMUSTINE
     Dosage: 355 MG DAY 1 AND 2, REPEAT DAY 29
     Route: 042
     Dates: start: 20120724
  2. BENDAMUSTINE [Suspect]
     Active Substance: BENDAMUSTINE
     Dosage: 355 MG DAY 1 AND 2, REPEAT DAY 29
     Route: 042
     Dates: start: 20121022
  3. BENDAMUSTINE [Suspect]
     Active Substance: BENDAMUSTINE
     Dosage: 360 MG DAY 1 AND 2, REPEAT DAY 29
     Route: 042
     Dates: start: 20120918
  4. BENDAMUSTINE [Suspect]
     Active Substance: BENDAMUSTINE
     Dosage: 360 MG DAY 1 AND 2, REPEAT DAY 29
     Route: 042
     Dates: start: 20121122
  5. BENDAMUSTINE [Suspect]
     Active Substance: BENDAMUSTINE
     Indication: CHRONIC LYMPHOCYTIC LEUKAEMIA
     Dosage: 360 MG DAY 1 AND 2, REPEAT DAY 29
     Route: 042
     Dates: start: 20120626
  6. BENDAMUSTINE [Suspect]
     Active Substance: BENDAMUSTINE
     Dosage: 360 MG DAY 1 AND 2, REPEAT DAY 29
     Route: 042
     Dates: start: 20120821

REACTIONS (1)
  - Polyneuropathy [Recovered/Resolved]

NARRATIVE: CASE EVENT DATE: 20121122
